FAERS Safety Report 9856264 (Version 3)
Quarter: 2014Q2

REPORT INFORMATION
  Report Type: Spontaneous
  Country: US (occurrence: None)
  Receive Date: 20140129
  Receipt Date: 20140421
  Transmission Date: 20141212
  Serious: No
  Sender: FDA-Public Use
  Company Number: 2014CT000008

PATIENT
  Age: 44 Year
  Sex: Female
  Weight: 103.42 kg

DRUGS (3)
  1. KORLYM [Suspect]
     Indication: CUSHING^S SYNDROME
     Route: 048
     Dates: start: 20130904, end: 2013
  2. SPIRONOLACTONE [Concomitant]
  3. POTASSIUM [Concomitant]

REACTIONS (1)
  - Vaginal haemorrhage [None]
